FAERS Safety Report 16744072 (Version 3)
Quarter: 2019Q4

REPORT INFORMATION
  Report Type: Report from Study
  Country: CA (occurrence: CA)
  Receive Date: 20190827
  Receipt Date: 20191004
  Transmission Date: 20200122
  Serious: Yes (Disabling, Other)
  Sender: FDA-Public Use
  Company Number: CA-UCBSA-2019036195

PATIENT
  Sex: Male

DRUGS (2)
  1. CERTOLIZUMAB PEGOL ASP [Suspect]
     Active Substance: CERTOLIZUMAB PEGOL
     Dosage: 200 MILLIGRAM, EV 2 WEEKS(QOW)
     Route: 058
  2. CERTOLIZUMAB PEGOL ASP [Suspect]
     Active Substance: CERTOLIZUMAB PEGOL
     Indication: ANKYLOSING SPONDYLITIS
     Dosage: 400 MILLIGRAM, EV 2 WEEKS(QOW)
     Route: 058
     Dates: start: 20190724

REACTIONS (10)
  - Dyspnoea [Unknown]
  - Abdominal pain [Unknown]
  - Night sweats [Unknown]
  - Hypoaesthesia [Unknown]
  - Myalgia [Unknown]
  - Fatigue [Unknown]
  - Chest pain [Unknown]
  - Oropharyngeal pain [Unknown]
  - Pyrexia [Unknown]
  - Back pain [Unknown]

NARRATIVE: CASE EVENT DATE: 2019
